FAERS Safety Report 8303565-2 (Version None)
Quarter: 2012Q2

REPORT INFORMATION
  Report Type: 
  Country: None (occurrence: None)
  Receive Date: 20120423
  Receipt Date: 20120416
  Transmission Date: 20120825
  Serious: Yes (Hospitalization)
  Sender: FDA-Public Use
  Company Number: US-BAYER-2011-040393

PATIENT
  Age: 18 Year
  Sex: Female
  Weight: 77.098 kg

DRUGS (9)
  1. ZOLOFT [Concomitant]
     Indication: ANXIETY
  2. PERCOCET [Concomitant]
  3. YAZ [Suspect]
     Indication: PREMENSTRUAL SYNDROME
  4. ZOLOFT [Concomitant]
     Indication: DEPRESSION
     Dosage: 100 MG, QD
     Route: 048
  5. YAZ [Suspect]
     Indication: CONTRACEPTION
     Dosage: UNK
     Dates: start: 20080501, end: 20100101
  6. PERCOCET [Concomitant]
     Indication: POST-TRAUMATIC PAIN
     Dosage: UNK
     Dates: start: 20100115
  7. CLARAVIS [Concomitant]
     Indication: ACNE
     Dosage: 40 MG, QD
     Route: 048
  8. CLONAZEPAM [Concomitant]
     Dosage: 0.5 MG, UNK
     Dates: start: 20091015
  9. YAZ [Suspect]
     Indication: ACNE

REACTIONS (9)
  - DEEP VEIN THROMBOSIS [None]
  - PAIN IN EXTREMITY [None]
  - ANHEDONIA [None]
  - PAIN [None]
  - EMOTIONAL DISTRESS [None]
  - GENERAL PHYSICAL HEALTH DETERIORATION [None]
  - ARTHRALGIA [None]
  - ANXIETY [None]
  - INJURY [None]
